FAERS Safety Report 9919855 (Version 2)
Quarter: 2014Q2

REPORT INFORMATION
  Report Type: Spontaneous
  Country: US (occurrence: US)
  Receive Date: 20140224
  Receipt Date: 20140410
  Transmission Date: 20141212
  Serious: Yes (Death)
  Sender: FDA-Public Use
  Company Number: US-B.I. PHARMACEUTICALS,INC./RIDGEFIELD-2014-BI-07816BP

PATIENT
  Sex: Male

DRUGS (21)
  1. PRADAXA [Suspect]
     Indication: PRODUCT USED FOR UNKNOWN INDICATION
     Route: 065
  2. HYDROCODON-ACETAMINOPHEN [Concomitant]
     Route: 065
  3. RANEXA ER 500 MG TABLET [Concomitant]
     Route: 065
  4. MUPIROCIN 2% OINTMENT [Concomitant]
     Dosage: FORMULATION: OINTMENT,DOSE PER APPLICATION :2%
     Route: 065
  5. FUROSEMIDE 40MG TABLET [Concomitant]
     Route: 065
  6. TRAMADOL HCL ER 100 MG [Concomitant]
     Route: 065
  7. DOC-Q-LACE 100 MG SOFTGEL [Concomitant]
     Route: 065
  8. ATORVASTATIN 40 MG TABLET [Concomitant]
     Route: 065
  9. GABAPENTIN  300 MG CAPSULE [Concomitant]
     Route: 065
  10. CEPHALEXIN 500 MG CAPSULE [Concomitant]
     Route: 065
  11. OXYCONTIN 20 MG TABLET [Concomitant]
     Route: 065
  12. CYMBALTA [Concomitant]
     Route: 065
  13. CARVEDILOL 6.25 MG TABLET [Concomitant]
     Route: 065
  14. NEXIUM DR 40 MG CAPSULE [Concomitant]
     Route: 065
  15. POTASSIUM CL 10%(20MEQ/15 [Concomitant]
     Dosage: DOSE PER APPLICATION : 10%(20MEQ/15
     Route: 065
  16. TORSEMIDE 20 MG TABLET [Concomitant]
     Route: 065
  17. PROMETHAZINE 25 MG TABLET [Concomitant]
     Route: 065
  18. LIDODERM 5% PATCH [Concomitant]
     Dosage: DOSE PER APPLICATION: 5%
     Route: 065
  19. METOLAZONE 5 MG TABLET [Concomitant]
     Route: 065
  20. CARAFATE 1 GM/10 MI SUSP [Concomitant]
     Dosage: DOSE PER APPLICATION :1 GM/10 MI SUSP
     Route: 065
  21. FERROUS SULPHATE 325 MG TABLET [Concomitant]
     Route: 065

REACTIONS (1)
  - Death [Fatal]
